FAERS Safety Report 23079608 (Version 1)
Quarter: 2023Q4

REPORT INFORMATION
  Report Type: Other
  Country: None (occurrence: US)
  Receive Date: 20231018
  Receipt Date: 20231018
  Transmission Date: 20240110
  Serious: Yes (Other)
  Sender: FDA-Public Use
  Company Number: US-B.Braun Medical Inc.-2147185

PATIENT
  Age: 54 Year
  Sex: Male

DRUGS (3)
  1. CEFTRIAXONE SODIUM [Suspect]
     Active Substance: CEFTRIAXONE SODIUM
     Indication: Nocardiosis
  2. LINEZOLID [Suspect]
     Active Substance: LINEZOLID
  3. MEROPENEM [Concomitant]
     Active Substance: MEROPENEM

REACTIONS (1)
  - Neuropathy peripheral [None]
